FAERS Safety Report 11102150 (Version 1)
Quarter: 2015Q2

REPORT INFORMATION
  Report Type: Other
  Country: ES (occurrence: ES)
  Receive Date: 20150511
  Receipt Date: 20150511
  Transmission Date: 20150821
  Serious: Yes (Hospitalization, Other)
  Sender: FDA-Public Use
  Company Number: ES-TAKEDA-2015TJP007921

PATIENT
  Age: 71 Year
  Sex: Male

DRUGS (8)
  1. HYDROCHLOROTHIAZIDE. [Suspect]
     Active Substance: HYDROCHLOROTHIAZIDE
     Indication: HYPERTENSION
     Dosage: 12.5 MG, QD
     Route: 048
     Dates: start: 201402, end: 20141110
  2. SUTENT [Suspect]
     Active Substance: SUNITINIB MALATE
     Dosage: 37.5 MG, CYCLIC (4 WEEKS ON WEEKS OFF)
     Route: 048
     Dates: start: 201109, end: 201409
  3. SUTENT [Suspect]
     Active Substance: SUNITINIB MALATE
     Dosage: 37 MG, CYCLIC (4 WEEKS ON WEEKS OFF)
     Route: 048
     Dates: start: 201409, end: 20141110
  4. FINASTERIDE. [Concomitant]
     Active Substance: FINASTERIDE
     Dosage: UNK
  5. LISINOPRIL. [Suspect]
     Active Substance: LISINOPRIL
     Indication: HYPERTENSION
     Dosage: 20 MG, QD
     Route: 048
     Dates: start: 201402, end: 20141110
  6. LANSOPRAZOLE. [Suspect]
     Active Substance: LANSOPRAZOLE
     Indication: PRODUCT USED FOR UNKNOWN INDICATION
     Dosage: 30 MG, QD
     Route: 048
     Dates: start: 201402, end: 20141110
  7. AMLODIPINE [Concomitant]
     Active Substance: AMLODIPINE BESYLATE
     Dosage: UNK
     Dates: start: 201401
  8. SUTENT [Suspect]
     Active Substance: SUNITINIB MALATE
     Indication: RENAL CANCER
     Dosage: 50 MG, CYCLIC (4 WEEKS ON WEEKS OFF)
     Route: 048
     Dates: start: 201105, end: 201109

REACTIONS (5)
  - Hyperamylasaemia [Recovered/Resolved]
  - Hypothyroidism [Unknown]
  - Pancreatitis [Unknown]
  - Hypertension [Unknown]
  - Abdominal pain [Recovered/Resolved]

NARRATIVE: CASE EVENT DATE: 20141110
